FAERS Safety Report 15347383 (Version 1)
Quarter: 2018Q3

REPORT INFORMATION
  Report Type: Spontaneous
  Country: US (occurrence: US)
  Receive Date: 20180904
  Receipt Date: 20180904
  Transmission Date: 20181010
  Serious: No
  Sender: FDA-Public Use
  Company Number: US-BIOVITRUM-2017US1051

PATIENT
  Age: 16 Year
  Sex: Male

DRUGS (1)
  1. KINERET [Suspect]
     Active Substance: ANAKINRA
     Indication: INFLAMMATION
     Route: 058

REACTIONS (1)
  - Injection site discomfort [Unknown]
